FAERS Safety Report 5901847-2 (Version None)
Quarter: 2008Q3

REPORT INFORMATION
  Report Type: 
  Country: None (occurrence: None)
  Receive Date: 20080929
  Receipt Date: 20080408
  Transmission Date: 20090109
  Serious: Yes (Other)
  Sender: FDA-Public Use
  Company Number: CN-BAYER-200820088GPV

PATIENT
  Age: 11 Year
  Sex: Male
  Weight: 23 kg

DRUGS (17)
  1. FLUDARABINE PHOSPHATE [Suspect]
     Indication: THALASSAEMIA BETA
     Route: 065
  2. BUSULFAN [Suspect]
     Indication: BONE MARROW CONDITIONING REGIMEN
     Route: 065
  3. ATGAM [Suspect]
     Indication: BONE MARROW CONDITIONING REGIMEN
     Route: 065
  4. ATGAM [Concomitant]
     Indication: THALASSAEMIA BETA
     Route: 065
  5. ANTIBIOTICS [Concomitant]
     Indication: INFECTION PROPHYLAXIS
     Route: 065
  6. ITRACONAZOLE [Concomitant]
     Indication: INFECTION PROPHYLAXIS
     Route: 065
  7. IMMUNE GLOBULIN INTRAVENOUS (HUMAN) [Concomitant]
     Indication: PYREXIA
     Route: 065
  8. NEUPOGEN [Concomitant]
     Indication: PROPHYLAXIS AGAINST GRAFT VERSUS HOST DISEASE
     Route: 058
  9. PROMETHAZINE [Concomitant]
     Indication: PROPHYLAXIS
     Route: 065
  10. MESNA [Concomitant]
     Indication: PROPHYLAXIS URINARY TRACT INFECTION
     Route: 065
  11. PROSTAGLANDIN E1 [Concomitant]
     Indication: PROPHYLAXIS
     Route: 041
  12. DEFEROXAMINE MESYLATE [Concomitant]
     Indication: DRUG USE FOR UNKNOWN INDICATION
     Route: 030
  13. METHYLPREDNISOLONE [Concomitant]
     Indication: PROPHYLAXIS AGAINST GRAFT VERSUS HOST DISEASE
     Route: 065
  14. CYCLOSPORINE [Concomitant]
     Indication: PROPHYLAXIS AGAINST GRAFT VERSUS HOST DISEASE
     Route: 042
  15. CYCLOSPORINE [Concomitant]
     Route: 048
  16. PROMETHAZINE [Concomitant]
     Route: 065
  17. DEXAMETHASONE [Concomitant]
     Indication: PROPHYLAXIS
     Route: 065

REACTIONS (3)
  - CYTOMEGALOVIRUS ANTIGEN POSITIVE [None]
  - PYREXIA [None]
  - SUPRAVENTRICULAR EXTRASYSTOLES [None]
